FAERS Safety Report 18704887 (Version 1)
Quarter: 2021Q1

REPORT INFORMATION
  Report Type: Other
  Country: TR (occurrence: TR)
  Receive Date: 20210105
  Receipt Date: 20210105
  Transmission Date: 20210419
  Serious: Yes (Death, Other)
  Sender: FDA-Public Use
  Company Number: TR-ROCHE-2741437

PATIENT
  Age: 74 Year
  Sex: Male

DRUGS (1)
  1. TOCILIZUMAB. [Suspect]
     Active Substance: TOCILIZUMAB
     Indication: COVID-19
     Dosage: 3 DOSES OF TOCILIZUMAB
     Route: 042

REACTIONS (6)
  - Multiple organ dysfunction syndrome [Not Recovered/Not Resolved]
  - Cardiac arrest [Fatal]
  - Respiratory rate increased [Not Recovered/Not Resolved]
  - Intentional product use issue [Unknown]
  - Hypoxia [Not Recovered/Not Resolved]
  - Off label use [Unknown]
